FAERS Safety Report 13742050 (Version 1)
Quarter: 2017Q3

REPORT INFORMATION
  Report Type: Spontaneous
  Country: JP (occurrence: JP)
  Receive Date: 20170711
  Receipt Date: 20170711
  Transmission Date: 20171127
  Serious: Yes (Hospitalization)
  Sender: FDA-Public Use
  Company Number: PHHY2010JP27526

PATIENT
  Age: 69 Year
  Sex: Female

DRUGS (18)
  1. GASTER [Concomitant]
     Active Substance: FAMOTIDINE
     Dosage: UNK
     Dates: start: 20080730
  2. LOXONIN [Concomitant]
     Active Substance: LOXOPROFEN SODIUM
     Dosage: UNK
     Dates: start: 2007
  3. PELEX [Concomitant]
     Dosage: UNK
     Dates: start: 20100104, end: 20100106
  4. MERISLON [Concomitant]
     Active Substance: BETAHISTINE MESILATE
     Dosage: UNK
  5. SODIUM HYALURONATE [Suspect]
     Active Substance: HYALURONATE SODIUM
     Indication: DRY EYE
     Dosage: 1 GTT OU, QID;
     Dates: start: 20090801
  6. LACTOSE [Concomitant]
     Active Substance: LACTOSE
     Dosage: UNK
     Dates: start: 2006
  7. AMLODIPINE [Concomitant]
     Active Substance: AMLODIPINE BESYLATE
     Dosage: UNK
     Route: 048
     Dates: start: 20101022
  8. POSTERISAN [Concomitant]
     Active Substance: LIDOCAINE
     Dosage: UNK
     Dates: start: 20100512, end: 20100614
  9. MIKELAN LA 2% [Suspect]
     Active Substance: CARTEOLOL HYDROCHLORIDE
     Indication: OPEN ANGLE GLAUCOMA
     Dosage: 1 GTT OS, QD
     Route: 047
     Dates: start: 200811, end: 20090403
  10. ADALAT [Concomitant]
     Active Substance: NIFEDIPINE
     Dosage: UNK
  11. MIKELAN LA 2% [Suspect]
     Active Substance: CARTEOLOL HYDROCHLORIDE
     Dosage: 1 GTT OU, QD
     Route: 047
     Dates: start: 20090404
  12. KYORIN AP 2 [Concomitant]
     Active Substance: SIMETRIDE
     Dosage: UNK
     Dates: start: 2006
  13. BONALON [Concomitant]
     Active Substance: ALENDRONATE SODIUM
     Dosage: 35 MG, UNK
     Dates: start: 20090904
  14. FAMOTIDINE. [Concomitant]
     Active Substance: FAMOTIDINE
     Dosage: UNK
     Dates: start: 20100626
  15. NELBON [Concomitant]
     Active Substance: NITRAZEPAM
     Dosage: UNK
     Dates: start: 20091021
  16. LUMIGAN [Suspect]
     Active Substance: BIMATOPROST
     Indication: GLAUCOMA
     Dosage: 1 GTT OU, QD
     Route: 047
     Dates: start: 20100109
  17. BAYASPIRIN [Concomitant]
     Active Substance: ASPIRIN
     Dosage: UNK
     Dates: start: 20080730
  18. TAFLUPROST [Concomitant]
     Active Substance: TAFLUPROST
     Dosage: UNK
     Dates: start: 200905

REACTIONS (4)
  - Myocardial infarction [Unknown]
  - Eyelash thickening [Not Recovered/Not Resolved]
  - Iris hyperpigmentation [Not Recovered/Not Resolved]
  - Blepharal pigmentation [Not Recovered/Not Resolved]

NARRATIVE: CASE EVENT DATE: 20100421
